FAERS Safety Report 12408685 (Version 1)
Quarter: 2016Q2

REPORT INFORMATION
  Report Type: Spontaneous
  Country: CZ (occurrence: CZ)
  Receive Date: 20160526
  Receipt Date: 20160526
  Transmission Date: 20160815
  Serious: Yes (Other)
  Sender: FDA-Public Use
  Company Number: CZ-MYLANLABS-2016M1021440

PATIENT

DRUGS (6)
  1. GABAPENTIN. [Concomitant]
     Active Substance: GABAPENTIN
     Route: 065
  2. CITALOPRAM [Concomitant]
     Active Substance: CITALOPRAM HYDROBROMIDE
     Route: 065
  3. SULPIRIDE [Concomitant]
     Active Substance: SULPIRIDE
     Dosage: 50MG 1 TO 3 TIMES DAILY
     Route: 065
  4. CLONAZEPAM. [Suspect]
     Active Substance: CLONAZEPAM
     Indication: MENTAL DISORDER
     Dosage: APPROXIMATELY 60 MG DAILY
     Route: 065
  5. ALPRAZOLAM. [Suspect]
     Active Substance: ALPRAZOLAM
     Indication: MENTAL DISORDER
     Dosage: 10MG DAILY
     Route: 065
  6. BETAXOLOL. [Concomitant]
     Active Substance: BETAXOLOL
     Route: 065

REACTIONS (9)
  - Drug abuse [Recovered/Resolved]
  - Tension [Recovered/Resolved]
  - Insomnia [Recovered/Resolved]
  - Headache [Recovered/Resolved]
  - Overdose [Unknown]
  - Drug withdrawal syndrome [Recovered/Resolved]
  - Disinhibition [Unknown]
  - Drug dependence [Recovered/Resolved]
  - Toxicity to various agents [Unknown]
